FAERS Safety Report 4268684-9 (Version None)
Quarter: 2004Q1

REPORT INFORMATION
  Report Type: 
  Country: None (occurrence: None)
  Receive Date: 20040109
  Receipt Date: 20031224
  Transmission Date: 20041129
  Serious: Yes (Hospitalization)
  Sender: FDA-Public Use
  Company Number: 2003AP03655

PATIENT
  Age: 75 Year
  Sex: Male

DRUGS (7)
  1. IRESSA [Suspect]
     Indication: LUNG ADENOCARCINOMA
     Dosage: 250 MG DAILY PO
     Route: 048
     Dates: start: 20030730, end: 20031003
  2. IRESSA [Suspect]
     Indication: LUNG ADENOCARCINOMA
     Dosage: 250 MG DAILY PO
     Route: 048
     Dates: start: 20031020
  3. UNIPHYL [Concomitant]
  4. NORVASC [Concomitant]
  5. FLUTICASONE PROPIONATE [Concomitant]
  6. TAKEPRON [Concomitant]
  7. RADIOTHERAPY [Concomitant]

REACTIONS (7)
  - DIARRHOEA [None]
  - HYPERTENSION [None]
  - PNEUMONIA [None]
  - PNEUMONIA BACTERIAL [None]
  - RASH [None]
  - SERRATIA INFECTION [None]
  - SPUTUM CULTURE POSITIVE [None]
